FAERS Safety Report 8800966 (Version 1)
Quarter: 2012Q4

REPORT INFORMATION
  Report Type: 
  Country: US (occurrence: US)
  Receive Date: 20120921
  Receipt Date: 20120921
  Transmission Date: 20130627
  Serious: Yes (Other)
  Sender: FDA-Public Use
  Company Number: US-ROXANE LABORATORIES, INC.-2012-RO-01869RO

PATIENT
  Age: 69 Year
  Sex: Male

DRUGS (8)
  1. LORAZEPAM [Suspect]
     Indication: ALCOHOL WITHDRAWAL SYNDROME
  2. LORAZEPAM [Suspect]
  3. LORAZEPAM [Suspect]
     Indication: AGITATION
  4. PHENYTOIN [Suspect]
     Indication: PROPHYLAXIS
  5. DEXMEDETOMIDINE [Suspect]
     Indication: AGITATION
     Route: 042
  6. DEXMEDETOMIDINE [Suspect]
     Route: 042
  7. THIAMINE [Concomitant]
     Indication: PROPHYLAXIS
     Dosage: 100 mg
     Route: 042
  8. FOLATE [Concomitant]
     Indication: PROPHYLAXIS
     Dosage: 1 mg
     Route: 042

REACTIONS (5)
  - Depressed level of consciousness [Recovered/Resolved]
  - Agitation [Recovered/Resolved]
  - Respiratory depression [Recovered/Resolved]
  - Cerebral salt-wasting syndrome [Unknown]
  - Atrial fibrillation [Unknown]
